FAERS Safety Report 7329473-1 (Version None)
Quarter: 2011Q1

REPORT INFORMATION
  Report Type: 
  Country: None (occurrence: None)
  Receive Date: 20110225
  Receipt Date: 20110225
  Transmission Date: 20110831
  Serious: Yes (Life-Threatening, Hospitalization)
  Sender: FDA-Public Use
  Company Number: None

PATIENT
  Age: 30 Year
  Sex: Female
  Weight: 62.1428 kg

DRUGS (2)
  1. NUVARING [Suspect]
     Indication: MENSTRUATION IRREGULAR
     Dosage: 1 NUVA RING 3 WEEKS VAG
     Route: 067
     Dates: start: 20101123, end: 20101226
  2. NUVARING [Suspect]
     Indication: CONTRACEPTION
     Dosage: 1 NUVA RING 3 WEEKS VAG
     Route: 067
     Dates: start: 20101123, end: 20101226

REACTIONS (2)
  - PULMONARY EMBOLISM [None]
  - PULMONARY INFARCTION [None]
